FAERS Safety Report 4594623-7 (Version None)
Quarter: 2005Q1

REPORT INFORMATION
  Report Type: 
  Country: None (occurrence: None)
  Receive Date: 20050301
  Receipt Date: 20041108
  Transmission Date: 20050727
  Serious: No
  Sender: FDA-Public Use
  Company Number: US-BRISTOL-MYERS SQUIBB COMPANY-12758439

PATIENT
  Age: 58 Year
  Sex: Male
  Weight: 118 kg

DRUGS (6)
  1. ERBITUX [Suspect]
     Indication: COLON CANCER METASTATIC
     Dosage: 1ST DOSE 800 MG ON 17-AUG-04, REC'D 10 ADD. TREATMENTS (500 MG), LAST ON 01-NOV-04
     Route: 042
     Dates: start: 20040101, end: 20040101
  2. BENADRYL [Concomitant]
     Indication: PREMEDICATION
     Route: 042
     Dates: start: 20040101, end: 20040101
  3. ALOXI [Concomitant]
  4. COMPAZINE [Concomitant]
  5. ATIVAN [Concomitant]
  6. CAMPTOSAR [Concomitant]

REACTIONS (1)
  - NAIL DISORDER [None]
